FAERS Safety Report 8215959-4 (Version None)
Quarter: 2012Q1

REPORT INFORMATION
  Report Type: 
  Country: None (occurrence: None)
  Receive Date: 20120316
  Receipt Date: 20120314
  Transmission Date: 20120608
  Serious: No
  Sender: FDA-Public Use
  Company Number: US-PFIZER INC-2012068275

PATIENT
  Sex: Female

DRUGS (2)
  1. MARIJUANA [Concomitant]
     Indication: SLEEP DISORDER
  2. CHANTIX [Suspect]
     Dosage: UNK

REACTIONS (1)
  - EMOTIONAL DISORDER [None]
